FAERS Safety Report 7389015-1 (Version None)
Quarter: 2011Q2

REPORT INFORMATION
  Report Type: 
  Country: None (occurrence: None)
  Receive Date: 20110401
  Receipt Date: 20110321
  Transmission Date: 20111010
  Serious: Yes (Other)
  Sender: FDA-Public Use
  Company Number: FR-PFIZER INC-2011071797

PATIENT
  Age: 24 Month
  Sex: Female
  Weight: 14 kg

DRUGS (16)
  1. ATARAX [Suspect]
     Dosage: 14 MG, 2X/DAY
     Route: 048
     Dates: start: 20110304, end: 20110304
  2. CODENFAN [Concomitant]
     Dosage: 14 MG, 4X/DAY
     Dates: start: 20110301
  3. SUFENTA PRESERVATIVE FREE [Suspect]
     Dosage: UNK
     Dates: start: 20110305, end: 20110305
  4. ROCEPHIN [Concomitant]
     Dosage: 1 G, 1X/DAY
     Dates: start: 20110303
  5. PROPOFOL [Concomitant]
  6. ATARAX [Suspect]
     Dosage: 14 MG, 1X/DAY
     Route: 048
     Dates: start: 20110306, end: 20110307
  7. BERINERT HS [Concomitant]
     Dosage: 500 IU, 1X/DAY
     Dates: start: 20110305
  8. CODENFAN [Concomitant]
     Dosage: 7 MG, UNK
     Dates: start: 20110303
  9. TRANEXAMIC ACID [Concomitant]
     Dosage: 180 MG, 3X/DAY
     Dates: start: 20110304
  10. NALBUPHINE HYDROCHLORIDE [Suspect]
     Dosage: 4.2 MG, 1X/DAY
     Dates: start: 20110305, end: 20110305
  11. AUGMENTIN [Concomitant]
     Dosage: UNK
     Dates: start: 20110303, end: 20110303
  12. FLAGYL [Concomitant]
     Dosage: 150 MG, 2X/DAY
     Dates: start: 20110308
  13. NALBUPHINE HYDROCHLORIDE [Suspect]
     Dosage: 4.2 MG, 3X/DAY
     Dates: start: 20110304, end: 20110304
  14. FLAGYL [Concomitant]
     Dosage: 210 MG, 2X/DAY
     Dates: start: 20110303, end: 20110301
  15. DALACINE [Concomitant]
     Dosage: 150 MG, 3X/DAY
     Dates: start: 20110303
  16. BERINERT HS [Concomitant]
     Dosage: 500 IU, 2X/DAY
     Dates: start: 20110303, end: 20110303

REACTIONS (3)
  - HALLUCINATION, VISUAL [None]
  - VITREOUS FLOATERS [None]
  - CONFUSIONAL STATE [None]
